FAERS Safety Report 4505274-4 (Version None)
Quarter: 2004Q4

REPORT INFORMATION
  Report Type: 
  Country: None (occurrence: None)
  Receive Date: 20041116
  Receipt Date: 20041103
  Transmission Date: 20050328
  Serious: Yes (Other)
  Sender: FDA-Public Use
  Company Number: 2004091025

PATIENT
  Age: 50 Year
  Sex: Female

DRUGS (2)
  1. BEXTRA [Suspect]
     Indication: PAIN IN EXTREMITY
     Dosage: 20 MG (20 MG,  1 D), ORAL
     Route: 048
     Dates: start: 20041027, end: 20041027
  2. THYROID HORMONES (THYROID HORMONES) [Concomitant]

REACTIONS (2)
  - SYNCOPE [None]
  - TREMOR [None]
